FAERS Safety Report 18941478 (Version 4)
Quarter: 2021Q4

REPORT INFORMATION
  Report Type: Spontaneous
  Country: DE (occurrence: DE)
  Receive Date: 20210225
  Receipt Date: 20211214
  Transmission Date: 20220303
  Serious: Yes (Hospitalization, Other)
  Sender: FDA-Public Use
  Company Number: None

PATIENT
  Age: 34 Year
  Sex: Female
  Weight: 53 kg

DRUGS (29)
  1. ELEXACAFTOR\IVACAFTOR\TEZACAFTOR [Interacting]
     Active Substance: ELEXACAFTOR\IVACAFTOR\TEZACAFTOR
     Indication: Cystic fibrosis
     Dosage: 2 TABLETS (IVA 75 MG/TEZA 50 MG /ELEXA 100 MG) IN THE MORNING
     Route: 048
     Dates: start: 20200929
  2. ELEXACAFTOR\IVACAFTOR\TEZACAFTOR [Interacting]
     Active Substance: ELEXACAFTOR\IVACAFTOR\TEZACAFTOR
     Dosage: 2 DOSAGE FORM, TID
     Route: 048
     Dates: start: 20201210, end: 202012
  3. ELEXACAFTOR\IVACAFTOR\TEZACAFTOR [Interacting]
     Active Substance: ELEXACAFTOR\IVACAFTOR\TEZACAFTOR
     Dosage: 2 DOSAGE FORM, BID
     Route: 048
     Dates: start: 202012, end: 202012
  4. ELEXACAFTOR\IVACAFTOR\TEZACAFTOR [Interacting]
     Active Substance: ELEXACAFTOR\IVACAFTOR\TEZACAFTOR
     Dosage: 2 DOSAGE FORM, QD
     Route: 048
     Dates: start: 202012
  5. ELEXACAFTOR\IVACAFTOR\TEZACAFTOR [Interacting]
     Active Substance: ELEXACAFTOR\IVACAFTOR\TEZACAFTOR
     Dosage: 2 DOSAGE FORM, EVERY THREE DAYS
     Route: 048
  6. KALYDECO [Interacting]
     Active Substance: IVACAFTOR
     Indication: Cystic fibrosis
     Dosage: 1 TABLET IN THE EVENING
     Route: 048
     Dates: start: 20200929
  7. KALYDECO [Interacting]
     Active Substance: IVACAFTOR
     Dosage: 150 MG, TID
     Route: 048
     Dates: start: 20201210, end: 202012
  8. KALYDECO [Interacting]
     Active Substance: IVACAFTOR
     Dosage: 150 MG, BID
     Route: 048
  9. KALYDECO [Interacting]
     Active Substance: IVACAFTOR
     Dosage: 150 MILLIGRAM, QD
     Route: 048
     Dates: start: 202012
  10. KALYDECO [Interacting]
     Active Substance: IVACAFTOR
     Dosage: 2 DOSAGE FORM, EVERY THREE DAYS
     Route: 048
  11. SULFAMETHOXAZOLE\TRIMETHOPRIM [Interacting]
     Active Substance: SULFAMETHOXAZOLE\TRIMETHOPRIM
     Indication: C-reactive protein increased
     Dosage: 2 DOSAGE FORM
     Route: 048
     Dates: start: 20201007, end: 20201011
  12. SULFAMETHOXAZOLE\TRIMETHOPRIM [Interacting]
     Active Substance: SULFAMETHOXAZOLE\TRIMETHOPRIM
     Indication: Cystic fibrosis
  13. PANTOPRAZOLE [Suspect]
     Active Substance: PANTOPRAZOLE
     Indication: Product used for unknown indication
     Route: 065
  14. CREON [Concomitant]
     Active Substance: PANCRELIPASE AMYLASE\PANCRELIPASE LIPASE\PANCRELIPASE PROTEASE
  15. INSULIN NOS [Concomitant]
     Active Substance: INSULIN NOS
  16. ONDANSETRON [Concomitant]
     Active Substance: ONDANSETRON
  17. BOSWELLIA SACRA [Concomitant]
     Dosage: UNK
     Dates: start: 201902
  18. TRIMETHOPRIM [Concomitant]
     Active Substance: TRIMETHOPRIM
     Dosage: 2 DOSAGE FORM
     Route: 048
     Dates: start: 20201007, end: 202010
  19. FERROUS GLYCINE SULFATE [Concomitant]
     Active Substance: FERROUS GLYCINE SULFATE
     Dosage: 1 DOSAGE FORM
  20. SODIUM CHLORIDE [Concomitant]
     Active Substance: SODIUM CHLORIDE
     Dosage: 1 DOSAGE FORM, 0.9?6% 1-0-1
  21. URSODIOL [Concomitant]
     Active Substance: URSODIOL
  22. FLUTICASONE PROPIONATE [Concomitant]
     Active Substance: FLUTICASONE PROPIONATE
  23. NOVORAPID [Concomitant]
     Active Substance: INSULIN ASPART
     Dosage: UNK
  24. FENOTEROL HYDROBROMIDE\IPRATROPIUM BROMIDE [Concomitant]
     Active Substance: FENOTEROL HYDROBROMIDE\IPRATROPIUM BROMIDE
  25. ACETYLCYSTEINE [Concomitant]
     Active Substance: ACETYLCYSTEINE
  26. FLUTICASONE PROPIONATE\SALMETEROL XINAFOATE [Concomitant]
     Active Substance: FLUTICASONE PROPIONATE\SALMETEROL XINAFOATE
     Dosage: 1 DOSAGE FORM
  27. URSODIOL [Concomitant]
     Active Substance: URSODIOL
  28. SODIUM CHLORIDE [Concomitant]
     Active Substance: SODIUM CHLORIDE
  29. URSODIOL [Concomitant]
     Active Substance: URSODIOL
     Dosage: 1-1-1

REACTIONS (12)
  - Drug interaction [Unknown]
  - Secretion discharge [Recovered/Resolved]
  - Frequent bowel movements [Recovering/Resolving]
  - Abscess rupture [Unknown]
  - Respiratory tract haemorrhage [Recovered/Resolved]
  - Bronchial secretion retention [Recovered/Resolved]
  - Oxygen saturation decreased [Recovered/Resolved]
  - Sputum increased [Recovered/Resolved]
  - Condition aggravated [Unknown]
  - Heart rate increased [Recovered/Resolved]
  - Accidental overdose [Unknown]
  - Blood glucose decreased [Recovering/Resolving]

NARRATIVE: CASE EVENT DATE: 20201001
